FAERS Safety Report 5302050-X (Version None)
Quarter: 2007Q2

REPORT INFORMATION
  Report Type: 
  Country: None (occurrence: None)
  Receive Date: 20070416
  Receipt Date: 20070416
  Transmission Date: 20071010
  Serious: Yes (Other)
  Sender: FDA-Public Use
  Company Number: None

PATIENT
  Age: 42 Year
  Sex: Female
  Weight: 61.2356 kg

DRUGS (1)
  1. CIPROFLOXACIN [Suspect]
     Indication: URINARY TRACT INFECTION
     Dosage: 500MG 2 PO
     Route: 048
     Dates: start: 20070326, end: 20070329

REACTIONS (5)
  - ANXIETY [None]
  - CONFUSIONAL STATE [None]
  - MENTAL DISORDER [None]
  - MYALGIA [None]
  - PRURITUS [None]
